FAERS Safety Report 7541315-8 (Version None)
Quarter: 2011Q2

REPORT INFORMATION
  Report Type: 
  Country: None (occurrence: None)
  Receive Date: 20110612
  Receipt Date: 20110602
  Transmission Date: 20111010
  Serious: Yes (Hospitalization)
  Sender: FDA-Public Use
  Company Number: US-US-EMD SERONO, INC.-7063090

PATIENT
  Sex: Male

DRUGS (3)
  1. REBIF [Suspect]
     Indication: MULTIPLE SCLEROSIS
     Route: 058
     Dates: start: 20100420
  2. OTHER UNSPECIFIED MEDICATIONS [Concomitant]
  3. ALBUTEROL SULFATE AUTOHALER [Concomitant]
     Indication: EMPHYSEMA

REACTIONS (6)
  - ASTHENIA [None]
  - URINARY TRACT INFECTION [None]
  - DYSPNOEA [None]
  - BODY TEMPERATURE INCREASED [None]
  - FLUSHING [None]
  - PNEUMONIA [None]
